FAERS Safety Report 17756007 (Version 1)
Quarter: 2020Q2

REPORT INFORMATION
  Report Type: Spontaneous
  Country: US (occurrence: US)
  Receive Date: 20200507
  Receipt Date: 20200507
  Transmission Date: 20200714
  Serious: No
  Sender: FDA-Public Use
  Company Number: US-VERTEX PHARMACEUTICALS-2020-009940

PATIENT
  Sex: Female
  Weight: 53 kg

DRUGS (29)
  1. MYFORTIC [Concomitant]
     Active Substance: MYCOPHENOLATE SODIUM
  2. CEPHALEXIN [CEFALEXIN] [Concomitant]
     Active Substance: CEPHALEXIN
  3. TRIKAFTA [Suspect]
     Active Substance: ELEXACAFTOR\IVACAFTOR\TEZACAFTOR
     Indication: CYSTIC FIBROSIS
     Dosage: 2 ORANGE TABS100MG ELEXACAFTOR/ 50 MG TEZACAFTOR/ 75 MG IVACAFTOR AM;1 BLUE TAB150MG IVACAFTOR PM
     Route: 048
     Dates: start: 20200212
  4. CREON [Concomitant]
     Active Substance: PANCRELIPASE AMYLASE\PANCRELIPASE LIPASE\PANCRELIPASE PROTEASE
  5. DICYCLOMINE HCL [Concomitant]
     Active Substance: DICYCLOMINE HYDROCHLORIDE
  6. DIPHENHYDRAMINE. [Concomitant]
     Active Substance: DIPHENHYDRAMINE
  7. ESZOPICLONE. [Concomitant]
     Active Substance: ESZOPICLONE
  8. LORAZEPAM. [Concomitant]
     Active Substance: LORAZEPAM
  9. URSODIOL. [Concomitant]
     Active Substance: URSODIOL
  10. VENTOLIN HFA [Concomitant]
     Active Substance: ALBUTEROL SULFATE
  11. GLUCAGON EMERGENCY KIT [Concomitant]
     Active Substance: GLUCAGON
  12. PREDNISONE. [Concomitant]
     Active Substance: PREDNISONE
  13. METOPROLOL TARTRATE. [Concomitant]
     Active Substance: METOPROLOL TARTRATE
  14. MYCOPHENOLIC ACID. [Concomitant]
     Active Substance: MYCOPHENOLIC ACID
  15. HUMALOG [Concomitant]
     Active Substance: INSULIN LISPRO
  16. PANTOPRAZOLE SODIUM. [Concomitant]
     Active Substance: PANTOPRAZOLE SODIUM
  17. TACROLIMUS. [Concomitant]
     Active Substance: TACROLIMUS
  18. TYLENOL [Concomitant]
     Active Substance: ACETAMINOPHEN
  19. CLONIDINE HCL [Concomitant]
     Active Substance: CLONIDINE HYDROCHLORIDE
  20. ESTARYLLA [Concomitant]
     Active Substance: ETHINYL ESTRADIOL\NORGESTIMATE
  21. FOLIC ACID. [Concomitant]
     Active Substance: FOLIC ACID
  22. RETACRIT [Concomitant]
     Active Substance: EPOETIN ALFA-EPBX
  23. FAMOTIDINE. [Concomitant]
     Active Substance: FAMOTIDINE
  24. VENLAFAXINE HYDROCHLORIDE. [Concomitant]
     Active Substance: VENLAFAXINE HYDROCHLORIDE
  25. LEVOFLOXACIN. [Concomitant]
     Active Substance: LEVOFLOXACIN
  26. VITAMIN D3 [Concomitant]
     Active Substance: CHOLECALCIFEROL
  27. BUDESONIDE. [Concomitant]
     Active Substance: BUDESONIDE
  28. ALLOPURINOL. [Concomitant]
     Active Substance: ALLOPURINOL
  29. OXYCODONE HYDROCHLORIDE. [Concomitant]
     Active Substance: OXYCODONE HYDROCHLORIDE

REACTIONS (3)
  - Weight decreased [Unknown]
  - Decreased appetite [Unknown]
  - Irritable bowel syndrome [Unknown]

NARRATIVE: CASE EVENT DATE: 2020
